FAERS Safety Report 6021265-9 (Version None)
Quarter: 2008Q4

REPORT INFORMATION
  Report Type: 
  Country: None (occurrence: None)
  Receive Date: 20081224
  Receipt Date: 20081224
  Transmission Date: 20090506
  Serious: Yes (Hospitalization)
  Sender: FDA-Public Use
  Company Number: None

PATIENT
  Sex: Female
  Weight: 58 kg

DRUGS (1)
  1. ERBITUX [Suspect]
     Dosage: 1798 MG

REACTIONS (3)
  - ASPIRATION [None]
  - PNEUMONIA [None]
  - PRODUCTIVE COUGH [None]
